FAERS Safety Report 12656434 (Version 1)
Quarter: 2016Q3

REPORT INFORMATION
  Report Type: Spontaneous
  Country: US (occurrence: US)
  Receive Date: 20160816
  Receipt Date: 20160816
  Transmission Date: 20161109
  Serious: No
  Sender: FDA-Public Use
  Company Number: US-PERRIGO-15US010142

PATIENT
  Age: 59 Year
  Sex: Female
  Weight: 79.37 kg

DRUGS (5)
  1. CALCIUM [Concomitant]
     Active Substance: CALCIUM
     Indication: SUPPLEMENTATION THERAPY
     Dosage: ONE TABLET, BID
     Route: 065
  2. LORATADINE. [Suspect]
     Active Substance: LORATADINE
     Indication: SEASONAL ALLERGY
     Dosage: 10 MG, SINGLE AT 1020
     Route: 048
     Dates: start: 20150924, end: 20150924
  3. LORATADINE. [Suspect]
     Active Substance: LORATADINE
     Indication: NASAL CONGESTION
     Dosage: 10 MG, SINGLE AT 2230
     Route: 048
     Dates: start: 20150924, end: 20150924
  4. LORATADINE. [Suspect]
     Active Substance: LORATADINE
     Indication: EYE PRURITUS
  5. LORATADINE. [Suspect]
     Active Substance: LORATADINE
     Indication: SINUSITIS
     Dosage: 10 MG, QD, PRN
     Route: 048
     Dates: start: 201407

REACTIONS (3)
  - Off label use [Not Recovered/Not Resolved]
  - Extra dose administered [Recovered/Resolved]
  - No adverse event [Unknown]

NARRATIVE: CASE EVENT DATE: 201407
